FAERS Safety Report 22051553 (Version 1)
Quarter: 2023Q1

REPORT INFORMATION
  Report Type: Spontaneous
  Country: US (occurrence: None)
  Receive Date: 20230301
  Receipt Date: 20230301
  Transmission Date: 20230418
  Serious: Yes (Other)
  Sender: FDA-Public Use
  Company Number: 2023A044372

PATIENT
  Age: 84 Year
  Sex: Male

DRUGS (36)
  1. NEXIUM [Suspect]
     Active Substance: ESOMEPRAZOLE MAGNESIUM
     Route: 048
  2. PROPOFOL [Concomitant]
     Active Substance: PROPOFOL
  3. LIDOCAINE [Concomitant]
     Active Substance: LIDOCAINE
  4. IOHEXOL [Concomitant]
     Active Substance: IOHEXOL
  5. ACETAMINOPHEN [Concomitant]
     Active Substance: ACETAMINOPHEN
  6. PHENYLEPHRINE DILUTION [Concomitant]
  7. LEVOTHYROXINE SODIUM [Concomitant]
     Active Substance: LEVOTHYROXINE SODIUM
  8. TERAZOSIN HCI [Concomitant]
  9. ASPIRIN [Concomitant]
     Active Substance: ASPIRIN
  10. PLAVIX [Concomitant]
     Active Substance: CLOPIDOGREL BISULFATE
  11. DULOXETINE [Concomitant]
     Active Substance: DULOXETINE
  12. FINASTERIDE [Concomitant]
     Active Substance: FINASTERIDE
  13. MIDODRINE [Concomitant]
     Active Substance: MIDODRINE
  14. ELIQUIS [Concomitant]
     Active Substance: APIXABAN
  15. DULCOLAX NOS [Concomitant]
     Active Substance: BISACODYL OR DOCUSATE SODIUM
  16. ALMACONE [Concomitant]
     Active Substance: ALUMINUM HYDROXIDE\DIMETHICONE\MAGNESIUM HYDROXIDE
  17. SUCRALFATE [Concomitant]
     Active Substance: SUCRALFATE
  18. QUETIAPINE?FUMARATE [Concomitant]
  19. BACLOFEN [Concomitant]
     Active Substance: BACLOFEN
  20. CRESTOR [Concomitant]
     Active Substance: ROSUVASTATIN CALCIUM
  21. ALBUTOROL [Concomitant]
  22. LORAZEPAM [Concomitant]
     Active Substance: LORAZEPAM
  23. ASPIRIN [Concomitant]
     Active Substance: ASPIRIN
  24. TERAZOSIN [Concomitant]
     Active Substance: TERAZOSIN HYDROCHLORIDE
  25. FLEET LAXATIVE [Concomitant]
  26. FERROUS SULFATE [Concomitant]
     Active Substance: FERROUS SULFATE
  27. MIRALAX [Concomitant]
     Active Substance: POLYETHYLENE GLYCOL 3350
  28. DOCUSATE SODIUM [Concomitant]
     Active Substance: DOCUSATE SODIUM
  29. NITROFURANTOIN MONOHYDRATE MACROCRYSTALS [Concomitant]
     Active Substance: NITROFURANTOIN\NITROFURANTOIN MONOHYDRATE
  30. OMEPRAZOLE [Concomitant]
     Active Substance: OMEPRAZOLE
  31. MOTEGRITY [Concomitant]
     Active Substance: PRUCALOPRIDE SUCCINATE
  32. PANTOPRAZOLE SODIUM [Concomitant]
     Active Substance: PANTOPRAZOLE SODIUM
  33. MIDODRINE HYDROCHLORIDE [Concomitant]
     Active Substance: MIDODRINE HYDROCHLORIDE
  34. INJECTAFER [Concomitant]
     Active Substance: FERRIC CARBOXYMALTOSE
  35. TRELEGY ELLIPTA [Concomitant]
     Active Substance: FLUTICASONE FUROATE\UMECLIDINIUM BROMIDE\VILANTEROL TRIFENATATE
  36. VITAMIN B12 [Concomitant]
     Active Substance: CYANOCOBALAMIN

REACTIONS (2)
  - Gastric cancer [Unknown]
  - Adenocarcinoma gastric [Unknown]

NARRATIVE: CASE EVENT DATE: 20201103
